FAERS Safety Report 13399505 (Version 1)
Quarter: 2017Q2

REPORT INFORMATION
  Report Type: Other
  Country: DE (occurrence: DE)
  Receive Date: 20170404
  Receipt Date: 20170404
  Transmission Date: 20170830
  Serious: Yes (Hospitalization)
  Sender: FDA-Public Use
  Company Number: DE-LUPIN PHARMACEUTICALS INC.-E2B_00006658

PATIENT
  Age: 71 Year
  Sex: Male

DRUGS (8)
  1. SERTRALINE [Suspect]
     Active Substance: SERTRALINE HYDROCHLORIDE
     Indication: PRODUCT USED FOR UNKNOWN INDICATION
     Dosage: 150 MG
     Route: 048
     Dates: start: 20130831
  2. NORTRILEN [Suspect]
     Active Substance: NORTRIPTYLINE
     Dosage: 25 MG
     Route: 048
     Dates: start: 20140909, end: 20140911
  3. METFORMIN [Concomitant]
     Active Substance: METFORMIN HYDROCHLORIDE
     Indication: PRODUCT USED FOR UNKNOWN INDICATION
     Dosage: 1000 MG,UNK,UNKNOWN
     Route: 048
  4. MELPERON [Suspect]
     Active Substance: MELPERONE
     Indication: PRODUCT USED FOR UNKNOWN INDICATION
     Dosage: 50 MG
     Route: 048
     Dates: start: 20120216, end: 20140904
  5. NORTRILEN [Suspect]
     Active Substance: NORTRIPTYLINE
     Indication: PRODUCT USED FOR UNKNOWN INDICATION
     Dosage: 100 MG
     Route: 048
     Dates: start: 20130503, end: 20140904
  6. NORTRILEN [Suspect]
     Active Substance: NORTRIPTYLINE
     Dosage: 75 MG
     Route: 048
     Dates: start: 20140906
  7. NORTRILEN [Suspect]
     Active Substance: NORTRIPTYLINE
     Dosage: 50 MG
     Route: 048
     Dates: start: 20140907, end: 20140908
  8. MIRTAZAPIN [Suspect]
     Active Substance: MIRTAZAPINE
     Indication: PRODUCT USED FOR UNKNOWN INDICATION
     Dosage: 30 MG
     Route: 048
     Dates: start: 20130801

REACTIONS (1)
  - Delirium [Recovered/Resolved]

NARRATIVE: CASE EVENT DATE: 20140820
